FAERS Safety Report 14603396 (Version 1)
Quarter: 2018Q1

REPORT INFORMATION
  Report Type: Spontaneous
  Country: FR (occurrence: FR)
  Receive Date: 20180306
  Receipt Date: 20180306
  Transmission Date: 20180509
  Serious: Yes (Hospitalization)
  Sender: FDA-Public Use
  Company Number: FR-MYLANLABS-2018M1014051

PATIENT
  Age: 76 Year
  Sex: Female

DRUGS (1)
  1. ACETAZOLAMIDE. [Suspect]
     Active Substance: ACETAZOLAMIDE
     Indication: PROPHYLAXIS
     Dosage: 2 TABLETS OF 250 MG WERE ADMINISTERED
     Route: 048

REACTIONS (2)
  - Lichenoid keratosis [Unknown]
  - Pigmentation disorder [Unknown]
